FAERS Safety Report 16836278 (Version 1)
Quarter: 2019Q3

REPORT INFORMATION
  Report Type: Spontaneous
  Country: GB (occurrence: GB)
  Receive Date: 20190921
  Receipt Date: 20190921
  Transmission Date: 20191005
  Serious: Yes (Hospitalization)
  Sender: FDA-Public Use
  Company Number: GB-TEVA-2019-GB-1109869

PATIENT
  Age: 42 Year
  Sex: Female

DRUGS (9)
  1. DULOXETINE. [Concomitant]
     Active Substance: DULOXETINE
  2. CARBAMAZEPINE. [Concomitant]
     Active Substance: CARBAMAZEPINE
  3. DIAZEPAM. [Concomitant]
     Active Substance: DIAZEPAM
  4. GABAPENTIN. [Concomitant]
     Active Substance: GABAPENTIN
  5. NAPROXEN. [Suspect]
     Active Substance: NAPROXEN
     Indication: PAIN
     Dosage: 1000 MG
     Route: 048
     Dates: start: 20180904, end: 20190722
  6. MORPHINE SULFATE. [Concomitant]
     Active Substance: MORPHINE SULFATE
  7. OMEPRAZOLE. [Concomitant]
     Active Substance: OMEPRAZOLE
  8. DIHYDROCODEINE [Concomitant]
     Active Substance: DIHYDROCODEINE
  9. FERROUS FUMARATE [Concomitant]
     Active Substance: FERROUS FUMARATE

REACTIONS (4)
  - Gastric disorder [Unknown]
  - Peptic ulcer perforation [Recovered/Resolved]
  - Abdominal pain [Unknown]
  - Peritonitis [Unknown]

NARRATIVE: CASE EVENT DATE: 20190722
